FAERS Safety Report 15900741 (Version 1)
Quarter: 2019Q1

REPORT INFORMATION
  Report Type: Spontaneous
  Country: US (occurrence: US)
  Receive Date: 20190201
  Receipt Date: 20190201
  Transmission Date: 20190417
  Serious: Yes (Hospitalization, Other)
  Sender: FDA-Public Use
  Company Number: US-JNJFOC-20171229257

PATIENT
  Age: 50 Year
  Sex: Female

DRUGS (13)
  1. ZEJULA [Suspect]
     Active Substance: NIRAPARIB
     Indication: OVARIAN CANCER
     Route: 048
  2. CELEXA [Concomitant]
     Active Substance: CITALOPRAM HYDROBROMIDE
     Route: 065
  3. AVAPRO [Concomitant]
     Active Substance: IRBESARTAN
     Route: 065
  4. ATIVAN [Concomitant]
     Active Substance: LORAZEPAM
     Route: 065
  5. LANTUS [Concomitant]
     Active Substance: INSULIN GLARGINE
     Route: 065
  6. ZETIA [Concomitant]
     Active Substance: EZETIMIBE
     Route: 065
  7. TRADJENTA [Concomitant]
     Active Substance: LINAGLIPTIN
     Route: 065
  8. LOFIBRA [Concomitant]
     Active Substance: FENOFIBRATE
     Route: 065
  9. NEURONTIN [Concomitant]
     Active Substance: GABAPENTIN
     Route: 065
  10. ZEJULA [Suspect]
     Active Substance: NIRAPARIB
     Indication: OVARIAN CANCER
     Route: 048
     Dates: start: 20190119
  11. GLUCOPHAGE [Concomitant]
     Active Substance: METFORMIN HYDROCHLORIDE
     Route: 065
  12. LEVAQUIN [Suspect]
     Active Substance: LEVOFLOXACIN
     Indication: DYSURIA
     Route: 065
  13. FLAGYL [Concomitant]
     Active Substance: METRONIDAZOLE\METRONIDAZOLE HYDROCHLORIDE
     Route: 065
     Dates: start: 20171223, end: 20180416

REACTIONS (36)
  - Monocyte count decreased [Unknown]
  - Blood urea increased [Unknown]
  - Drug hypersensitivity [Unknown]
  - Dry mouth [Unknown]
  - Urinary tract infection [Unknown]
  - Dysuria [Unknown]
  - Discomfort [Unknown]
  - Chills [Unknown]
  - pH urine increased [Unknown]
  - Blood albumin decreased [Unknown]
  - Mean cell haemoglobin concentration decreased [Unknown]
  - Ligament sprain [Unknown]
  - Hyperhidrosis [Unknown]
  - Haematuria [Unknown]
  - Blood creatinine increased [Unknown]
  - White blood cells urine positive [Unknown]
  - Foot fracture [Unknown]
  - Sepsis [Unknown]
  - Hospitalisation [Unknown]
  - Pollakiuria [Unknown]
  - International normalised ratio increased [Unknown]
  - Granulocyte count increased [Unknown]
  - Feeling abnormal [Unknown]
  - Red blood cell count decreased [Unknown]
  - Pain [Unknown]
  - Glucose urine present [Unknown]
  - Red blood cells urine positive [Unknown]
  - Haemoglobin decreased [Unknown]
  - Flank pain [Unknown]
  - Lymphocyte count decreased [Unknown]
  - Oropharyngeal pain [Unknown]
  - Vomiting [Unknown]
  - Blood glucose increased [Unknown]
  - Fatigue [Unknown]
  - Pyrexia [Unknown]
  - Fall [Unknown]

NARRATIVE: CASE EVENT DATE: 20180416
